FAERS Safety Report 5647757-X (Version None)
Quarter: 2008Q1

REPORT INFORMATION
  Report Type: 
  Country: None (occurrence: None)
  Receive Date: 20080303
  Receipt Date: 20080220
  Transmission Date: 20080703
  Serious: Yes (Hospitalization)
  Sender: FDA-Public Use
  Company Number: FR-PFIZER INC-2008016300

PATIENT
  Sex: Female

DRUGS (7)
  1. NEURONTIN [Suspect]
     Route: 048
  2. TRAMADOL HCL [Concomitant]
  3. SPECIAFOLDINE [Concomitant]
     Route: 048
  4. VITAMIN B-12 [Concomitant]
     Route: 048
  5. ATHYMIL [Concomitant]
     Route: 048
  6. RIVOTRIL [Concomitant]
     Route: 048
  7. PLAVIX [Concomitant]
     Route: 048

REACTIONS (2)
  - CONFUSIONAL STATE [None]
  - OVERDOSE [None]
